FAERS Safety Report 4768683-4 (Version None)
Quarter: 2005Q3

REPORT INFORMATION
  Report Type: 
  Country: None (occurrence: None)
  Receive Date: 20050913
  Receipt Date: 20050902
  Transmission Date: 20060218
  Serious: Yes (Life-Threatening, Hospitalization, Other)
  Sender: FDA-Public Use
  Company Number: 2005113492

PATIENT
  Age: 40 Year
  Sex: Female

DRUGS (11)
  1. ZITHROMAX [Suspect]
     Indication: BRONCHITIS
     Dates: start: 20050801, end: 20050801
  2. PEGINTERFERON ALFA-2B (PEGINTERFERON ALFA-2B) [Suspect]
     Indication: HEPATITIS C
     Dates: start: 20050621
  3. REBETOL [Suspect]
     Indication: HEPATITIS C
     Dosage: ORAL
     Route: 048
     Dates: start: 20050621
  4. HOMEOPATIC PREPARATION (HOMEOPATIC PREPARATION) [Suspect]
     Indication: ILL-DEFINED DISORDER
  5. AMBIEN [Concomitant]
  6. BENICAR [Concomitant]
  7. DARVOCET-N 100 [Concomitant]
  8. LEXAPRO [Concomitant]
  9. PREVACID [Concomitant]
  10. TYLENOL [Concomitant]
  11. XANAX [Concomitant]

REACTIONS (23)
  - ABDOMINAL PAIN [None]
  - ANAPHYLACTIC SHOCK [None]
  - BLOOD PRESSURE INCREASED [None]
  - CHEST PAIN [None]
  - CHILLS [None]
  - DIABETES MELLITUS NON-INSULIN-DEPENDENT [None]
  - DIARRHOEA [None]
  - DRUG HYPERSENSITIVITY [None]
  - FATIGUE [None]
  - HEART RATE INCREASED [None]
  - HOMICIDAL IDEATION [None]
  - MITRAL VALVE PROLAPSE [None]
  - NAUSEA [None]
  - OVARIAN NEOPLASM [None]
  - PANIC ATTACK [None]
  - PARANOIA [None]
  - PNEUMONIA [None]
  - PSYCHOTIC DISORDER [None]
  - PYREXIA [None]
  - RETINAL DETACHMENT [None]
  - SPLENIC INFARCTION [None]
  - SPLENOMEGALY [None]
  - SUICIDAL IDEATION [None]
